FAERS Safety Report 9596177 (Version 1)
Quarter: 2013Q4

REPORT INFORMATION
  Report Type: Spontaneous
  Country: US (occurrence: US)
  Receive Date: 20131004
  Receipt Date: 20131004
  Transmission Date: 20140711
  Serious: No
  Sender: FDA-Public Use
  Company Number: US-BAYER-2013-117475

PATIENT
  Age: 40 Year
  Sex: Female

DRUGS (10)
  1. BETASERON [Suspect]
     Dosage: 0.25 MG, QOD
     Route: 058
  2. PROMETHAZIN [Concomitant]
     Dosage: 12.5 MG, UNK
  3. TRAZODONE [Concomitant]
     Dosage: 50 MG, UNK
  4. OXCARBAZEPINE [Concomitant]
     Dosage: 150 MG, UNK
  5. BACLOFEN [Concomitant]
     Dosage: 10 MG, UNK
  6. ALPRAZOLAM [Concomitant]
     Dosage: 0.25 MG, UNK
  7. NUCYNTA [Concomitant]
     Dosage: 50 MG, UNK
  8. CITALOPRAM [Concomitant]
     Dosage: 10 MG, UNK
  9. NUVIGIL [Concomitant]
     Dosage: 50 MG, UNK
  10. XANAX [Concomitant]
     Dosage: 1 MG, UNK

REACTIONS (3)
  - Fungal infection [Unknown]
  - Skin discolouration [Unknown]
  - Vision blurred [Unknown]
